FAERS Safety Report 17489833 (Version 1)
Quarter: 2020Q1

REPORT INFORMATION
  Report Type: Spontaneous
  Country: US (occurrence: US)
  Receive Date: 20200303
  Receipt Date: 20200303
  Transmission Date: 20200409
  Serious: No
  Sender: FDA-Public Use
  Company Number: US-AKORN PHARMACEUTICALS-2019AKN01412

PATIENT
  Sex: Female
  Weight: 58.96 kg

DRUGS (1)
  1. MYORISAN [Suspect]
     Active Substance: ISOTRETINOIN
     Dosage: 30 MG, 2X/DAY
     Dates: start: 20190625

REACTIONS (8)
  - Pyrexia [Unknown]
  - Abdominal pain upper [Unknown]
  - Headache [Unknown]
  - Vomiting [Unknown]
  - Hyperhidrosis [Unknown]
  - Diarrhoea [Unknown]
  - Chills [Unknown]
  - Nausea [Not Recovered/Not Resolved]

NARRATIVE: CASE EVENT DATE: 201906
